FAERS Safety Report 15578572 (Version 1)
Quarter: 2018Q4

REPORT INFORMATION
  Report Type: Spontaneous
  Country: ES (occurrence: ES)
  Receive Date: 20181102
  Receipt Date: 20181102
  Transmission Date: 20190205
  Serious: Yes (Life-Threatening, Hospitalization)
  Sender: FDA-Public Use
  Company Number: PHHY2018ES144551

PATIENT
  Age: 91 Year
  Sex: Female

DRUGS (5)
  1. CLINDAMICINA [Suspect]
     Active Substance: CLINDAMYCIN HYDROCHLORIDE
     Dosage: 300 MG, Q8H
     Route: 048
     Dates: start: 20180825, end: 20180829
  2. AMOXICILLIN+CLAVULANIC ACID [Suspect]
     Active Substance: AMOXICILLIN\CLAVULANIC ACID
     Dosage: UNK
  3. AMOXICILLIN+CLAVULANIC ACID [Suspect]
     Active Substance: AMOXICILLIN\CLAVULANIC ACID
     Indication: URINARY TRACT INFECTION
     Dosage: UNK
     Route: 048
     Dates: start: 20180910, end: 20180914
  4. CEFAZOLINA [Suspect]
     Active Substance: CEFAZOLIN SODIUM
     Indication: SEPTIC SHOCK
     Dosage: 2 G, Q8H
     Route: 042
     Dates: start: 20180814, end: 20180824
  5. CLINDAMICINA [Suspect]
     Active Substance: CLINDAMYCIN HYDROCHLORIDE
     Indication: SEPTIC SHOCK
     Dosage: 600 MG, Q8H
     Route: 042
     Dates: start: 20180814, end: 20180824

REACTIONS (1)
  - Mixed liver injury [Recovering/Resolving]

NARRATIVE: CASE EVENT DATE: 20180914
